FAERS Safety Report 16201965 (Version 1)
Quarter: 2019Q2

REPORT INFORMATION
  Report Type: Spontaneous
  Country: TW (occurrence: TW)
  Receive Date: 20190416
  Receipt Date: 20190416
  Transmission Date: 20190711
  Serious: Yes (Other)
  Sender: FDA-Public Use
  Company Number: TW-ASTELLAS-2019US015963

PATIENT
  Age: 61 Year
  Sex: Female

DRUGS (1)
  1. ERLOTINIB [Suspect]
     Active Substance: ERLOTINIB
     Indication: LUNG ADENOCARCINOMA
     Route: 048
     Dates: start: 20190323

REACTIONS (2)
  - Diarrhoea [Recovering/Resolving]
  - Faeces discoloured [Not Recovered/Not Resolved]

NARRATIVE: CASE EVENT DATE: 201904
